FAERS Safety Report 5794533-3 (Version None)
Quarter: 2008Q2

REPORT INFORMATION
  Report Type: 
  Country: None (occurrence: None)
  Receive Date: 20080626
  Receipt Date: 20080619
  Transmission Date: 20081010
  Serious: Yes (Life-Threatening, Disabling)
  Sender: FDA-Public Use
  Company Number: 2008-174245-NL

PATIENT
  Age: 76 Year
  Sex: Female

DRUGS (6)
  1. ROCURONIUM BROMIDE [Suspect]
     Indication: INDUCTION OF ANAESTHESIA
     Dosage: 35 MG ONCE/NI INTRAVENOUS (NOS)
     Route: 042
     Dates: start: 20080311, end: 20080311
  2. ROCURONIUM BROMIDE [Suspect]
     Indication: MAINTENANCE OF ANAESTHESIA
     Dosage: 35 MG ONCE/NI INTRAVENOUS (NOS)
     Route: 042
     Dates: start: 20080311, end: 20080311
  3. SEVOFLURANE [Concomitant]
  4. REMIFENTANIL HYDROCHLORIDE [Concomitant]
  5. PROPOFOL [Concomitant]
  6. ROPIVACAINE [Concomitant]

REACTIONS (3)
  - APALLIC SYNDROME [None]
  - CARDIAC ARREST [None]
  - RESPIRATORY ARREST [None]
